FAERS Safety Report 13843556 (Version 1)
Quarter: 2017Q3

REPORT INFORMATION
  Report Type: Spontaneous
  Country: PL (occurrence: PL)
  Receive Date: 20170808
  Receipt Date: 20170808
  Transmission Date: 20171127
  Serious: Yes (Other)
  Sender: FDA-Public Use
  Company Number: PL-SA-2017SA141942

PATIENT
  Age: 56 Year
  Sex: Male
  Weight: 92 kg

DRUGS (3)
  1. STILNOX [Suspect]
     Active Substance: ZOLPIDEM TARTRATE
     Indication: JOB CHANGE
     Route: 048
     Dates: start: 20170626, end: 20170708
  2. TRITACE [Concomitant]
     Active Substance: RAMIPRIL
     Route: 048
  3. LOKREN [Concomitant]
     Active Substance: BETAXOLOL HYDROCHLORIDE
     Indication: HYPERTENSION
     Route: 048

REACTIONS (3)
  - Heart rate irregular [Recovered/Resolved]
  - Extrasystoles [Recovered/Resolved]
  - Arrhythmia [Recovered/Resolved]

NARRATIVE: CASE EVENT DATE: 20170628
